FAERS Safety Report 14604042 (Version 1)
Quarter: 2018Q1

REPORT INFORMATION
  Report Type: Spontaneous
  Country: FI (occurrence: FI)
  Receive Date: 20180306
  Receipt Date: 20180306
  Transmission Date: 20180509
  Serious: Yes (Other)
  Sender: FDA-Public Use
  Company Number: FI-MYLANLABS-2018M1013491

PATIENT
  Age: 20 Year
  Sex: Female

DRUGS (3)
  1. INFLUENZA VIRUS VACCINE MYLAN [Suspect]
     Active Substance: INFLUENZA VIRUS VACCINE
     Indication: ANTIVIRAL PROPHYLAXIS
     Dosage: UNK
     Dates: start: 201711, end: 201711
  2. LEPONEX [Suspect]
     Active Substance: CLOZAPINE
     Indication: AGGRESSION
     Dosage: 125 MG, PM, IN THE EVENING
     Dates: start: 201510, end: 20180216
  3. LEPONEX [Suspect]
     Active Substance: CLOZAPINE
     Indication: CONDUCT DISORDER

REACTIONS (2)
  - Neutrophil count decreased [Recovered/Resolved]
  - Influenza B virus test positive [Unknown]

NARRATIVE: CASE EVENT DATE: 201802
